FAERS Safety Report 14641931 (Version 2)
Quarter: 2018Q1

REPORT INFORMATION
  Report Type: Spontaneous
  Country: FI (occurrence: FI)
  Receive Date: 20180315
  Receipt Date: 20180330
  Transmission Date: 20180509
  Serious: Yes (Disabling)
  Sender: FDA-Public Use
  Company Number: FI-SA-2018SA067812

PATIENT
  Age: 85 Year
  Sex: Female

DRUGS (3)
  1. FURESIS [Concomitant]
     Active Substance: FUROSEMIDE
     Indication: DIURETIC THERAPY
  2. PLAVIX [Suspect]
     Active Substance: CLOPIDOGREL BISULFATE
     Indication: EXTRASYSTOLES
     Route: 048
  3. BISOPROLOL RATIOPHARM [Concomitant]
     Active Substance: BISOPROLOL
     Indication: ARRHYTHMIA

REACTIONS (8)
  - Gait disturbance [Not Recovered/Not Resolved]
  - Tooth loss [Recovered/Resolved with Sequelae]
  - Loose tooth [Recovered/Resolved with Sequelae]
  - Diarrhoea [Not Recovered/Not Resolved]
  - Dizziness [Recovered/Resolved with Sequelae]
  - Spinal osteoarthritis [Not Recovered/Not Resolved]
  - Dental restoration failure [Recovered/Resolved with Sequelae]
  - Vertigo [Recovered/Resolved with Sequelae]
